FAERS Safety Report 16541675 (Version 1)
Quarter: 2019Q3

REPORT INFORMATION
  Report Type: Report from Study
  Country: FR (occurrence: FR)
  Receive Date: 20190708
  Receipt Date: 20190708
  Transmission Date: 20191004
  Serious: Yes (Other)
  Sender: FDA-Public Use
  Company Number: FR-JNJFOC-20190702031

PATIENT

DRUGS (2)
  1. REMICADE [Suspect]
     Active Substance: INFLIXIMAB
     Indication: INFLAMMATORY BOWEL DISEASE
     Route: 042
  2. ADALIMUMAB [Suspect]
     Active Substance: ADALIMUMAB
     Indication: INFLAMMATORY BOWEL DISEASE
     Route: 065

REACTIONS (10)
  - Demyelination [Unknown]
  - Myelitis transverse [Unknown]
  - Polyneuropathy [Unknown]
  - Deafness neurosensory [Unknown]
  - Depression [Unknown]
  - Optic neuritis [Unknown]
  - Headache [Unknown]
  - Seizure [Unknown]
  - Glioma [Unknown]
  - Cerebrovascular accident [Unknown]
